FAERS Safety Report 6318507-9 (Version None)
Quarter: 2009Q3

REPORT INFORMATION
  Report Type: 
  Country: None (occurrence: None)
  Receive Date: 20090821
  Receipt Date: 20090810
  Transmission Date: 20100115
  Serious: Yes (Other)
  Sender: FDA-Public Use
  Company Number: KR-PFIZER INC-2009254974

PATIENT
  Age: 68 Year

DRUGS (1)
  1. VIAGRA [Suspect]
     Dosage: FREQUENCY: 4OR5X/MONTH;
     Route: 048

REACTIONS (1)
  - MACULAR DEGENERATION [None]
